FAERS Safety Report 17570528 (Version 6)
Quarter: 2020Q3

REPORT INFORMATION
  Report Type: Report from Study
  Country: FR (occurrence: FR)
  Receive Date: 20200323
  Receipt Date: 20200728
  Transmission Date: 20201102
  Serious: Yes (Other)
  Sender: FDA-Public Use
  Company Number: FR-BRISTOL-MYERS SQUIBB COMPANY-BMS-2020-022688

PATIENT
  Age: 69 Year
  Sex: Female
  Weight: 60 kg

DRUGS (2)
  1. NIVOLUMAB [Suspect]
     Active Substance: NIVOLUMAB
     Indication: MALIGNANT NEOPLASM OF THYMUS
     Dosage: UNK
     Route: 042
     Dates: start: 20190918
  2. IOHEXOL [Suspect]
     Active Substance: IOHEXOL
     Indication: PRODUCT USED FOR UNKNOWN INDICATION
     Dosage: 120 MILLILITER
     Route: 065
     Dates: start: 202003

REACTIONS (2)
  - Deafness [Unknown]
  - Swollen tongue [Unknown]

NARRATIVE: CASE EVENT DATE: 202003
